FAERS Safety Report 5385292-7 (Version None)
Quarter: 2007Q3

REPORT INFORMATION
  Report Type: 
  Country: None (occurrence: None)
  Receive Date: 20070712
  Receipt Date: 20070703
  Transmission Date: 20080115
  Serious: Yes (Hospitalization)
  Sender: FDA-Public Use
  Company Number: US-AMGEN-STX227596

PATIENT
  Sex: Male
  Weight: 89.9 kg

DRUGS (5)
  1. ENBREL [Suspect]
     Indication: RHEUMATOID ARTHRITIS
     Route: 058
     Dates: start: 20061204
  2. METHOTREXATE [Concomitant]
     Route: 048
     Dates: start: 19990101
  3. CELEBREX [Concomitant]
     Dates: start: 20000804
  4. FOLIC ACID [Concomitant]
     Dates: start: 19990111
  5. PREDNISONE [Concomitant]
     Dates: start: 20000525

REACTIONS (1)
  - LARGE INTESTINE PERFORATION [None]
